FAERS Safety Report 12606443 (Version 1)
Quarter: 2016Q3

REPORT INFORMATION
  Report Type: Spontaneous
  Country: US (occurrence: None)
  Receive Date: 20160728
  Receipt Date: 20160728
  Transmission Date: 20161109
  Serious: Yes (Other)
  Sender: FDA-Public Use
  Company Number: None

PATIENT
  Age: 81 Year
  Sex: Female
  Weight: 83.01 kg

DRUGS (6)
  1. PRAVASTATIN SODIUM 20MG TABS TEVA PHARMACEUTICALS [Suspect]
     Active Substance: PRAVASTATIN SODIUM
     Indication: CORONARY ARTERY STENOSIS
     Dosage: 20 MG 1 PER DAY EVENINGS BY MOUTH
     Route: 048
     Dates: start: 20160202, end: 20160719
  2. PRAVASTATIN SODIUM 20MG TABS TEVA PHARMACEUTICALS [Suspect]
     Active Substance: PRAVASTATIN SODIUM
     Indication: BLOOD CHOLESTEROL INCREASED
     Dosage: 20 MG 1 PER DAY EVENINGS BY MOUTH
     Route: 048
     Dates: start: 20160202, end: 20160719
  3. LIQUID CALCIUM/MAGNESIUM [Concomitant]
  4. PRAVASTATIN SODIUM 20MG TABS TEVA PHARMACEUTICALS [Suspect]
     Active Substance: PRAVASTATIN SODIUM
     Indication: THROMBOSIS PROPHYLAXIS
     Dosage: 20 MG 1 PER DAY EVENINGS BY MOUTH
     Route: 048
     Dates: start: 20160202, end: 20160719
  5. COQ10 [Concomitant]
     Active Substance: UBIDECARENONE
  6. VITAMIN D3 [Concomitant]
     Active Substance: CHOLECALCIFEROL

REACTIONS (6)
  - Hallucination [None]
  - Middle insomnia [None]
  - Gait disturbance [None]
  - Headache [None]
  - Pain [None]
  - Restlessness [None]

NARRATIVE: CASE EVENT DATE: 20160719
